FAERS Safety Report 10057130 (Version 1)
Quarter: 2014Q2

REPORT INFORMATION
  Report Type: Spontaneous
  Country: US (occurrence: US)
  Receive Date: 20140403
  Receipt Date: 20140403
  Transmission Date: 20141212
  Serious: Yes (Other)
  Sender: FDA-Public Use
  Company Number: US-BAYER-2014-045800

PATIENT
  Sex: Male

DRUGS (1)
  1. BAYER ADVANCED ASPIRIN EXTRA STRENGTH [Suspect]
     Dosage: 2 DF, BID
     Route: 048
     Dates: start: 2011

REACTIONS (2)
  - Cerebrovascular accident [Recovered/Resolved]
  - Incorrect drug administration duration [None]
